FAERS Safety Report 4271967-X (Version None)
Quarter: 2004Q1

REPORT INFORMATION
  Report Type: 
  Country: None (occurrence: None)
  Receive Date: 20040115
  Receipt Date: 20031224
  Transmission Date: 20041129
  Serious: Yes (Hospitalization)
  Sender: FDA-Public Use
  Company Number: GB-BRISTOL-MYERS SQUIBB COMPANY-12464673

PATIENT
  Age: 41 Year
  Sex: Male

DRUGS (11)
  1. SUSTIVA [Suspect]
     Indication: HIV INFECTION
     Dates: start: 20000101
  2. RETROVIR [Suspect]
     Indication: HIV INFECTION
     Dosage: 100 MG CAPSULE
     Dates: start: 20000101
  3. LAMIVUDINE [Suspect]
     Indication: HIV INFECTION
     Dates: start: 20000101
  4. COTRIM [Concomitant]
     Indication: INFECTION PROPHYLAXIS
     Dosage: ^960 MG^
     Dates: start: 20000101
  5. BENZYLPENICILLIN [Concomitant]
     Indication: INFECTION
     Route: 042
  6. CLARITHROMYCIN [Concomitant]
     Route: 042
  7. HYDROCORTISONE [Concomitant]
     Route: 042
  8. PYRAZINAMIDE [Concomitant]
     Indication: TUBERCULOSIS
  9. RIFAMPICIN [Concomitant]
     Indication: TUBERCULOSIS
  10. ISONIAZID [Concomitant]
     Indication: TUBERCULOSIS
  11. ETHAMBUTOL HCL [Concomitant]
     Indication: TUBERCULOSIS

REACTIONS (8)
  - ACUTE RESPIRATORY FAILURE [None]
  - DYSPNOEA [None]
  - IMMUNE RECONSTITUTION SYNDROME [None]
  - NIGHT SWEATS [None]
  - OXYGEN SATURATION DECREASED [None]
  - PULMONARY ARTERIAL WEDGE PRESSURE INCREASED [None]
  - PYREXIA [None]
  - TUBERCULOSIS [None]
